FAERS Safety Report 5347664-6 (Version None)
Quarter: 2007Q2

REPORT INFORMATION
  Report Type: 
  Country: None (occurrence: None)
  Receive Date: 20070508
  Receipt Date: 20061002
  Transmission Date: 20071010
  Serious: Yes (Hospitalization)
  Sender: FDA-Public Use
  Company Number: 236452K06USA

PATIENT
  Age: 37 Year
  Sex: Female

DRUGS (4)
  1. REBIF [Suspect]
     Indication: MULTIPLE SCLEROSIS
     Dosage: 44 MCG, 3 IN 1 WEEKS, SUBCUTANEOUS
     Route: 058
     Dates: start: 20060803
  2. LEXAPRO [Concomitant]
  3. TYLENOL (COTYLENOL) [Concomitant]
  4. BENADRYL [Concomitant]

REACTIONS (4)
  - HEART RATE INCREASED [None]
  - HYPOAESTHESIA [None]
  - MULTIPLE SCLEROSIS [None]
  - PARAESTHESIA [None]
